FAERS Safety Report 22182547 (Version 1)
Quarter: 2023Q2

REPORT INFORMATION
  Report Type: Spontaneous
  Country: RU (occurrence: RU)
  Receive Date: 20230406
  Receipt Date: 20230406
  Transmission Date: 20230722
  Serious: Yes (Other)
  Sender: FDA-Public Use
  Company Number: RU-BAXTER-2023BAX017593

PATIENT
  Age: 6 Year
  Sex: Male
  Weight: 22 kg

DRUGS (2)
  1. IFOSFAMIDE [Suspect]
     Active Substance: IFOSFAMIDE
     Indication: Ewing^s sarcoma
     Dosage: (PORT SYSTEM) SINGLE DOSE - 1500 MG, DAILY DOSE - 7500
     Route: 041
     Dates: start: 20191219, end: 20191223
  2. IFOSFAMIDE [Suspect]
     Active Substance: IFOSFAMIDE
     Indication: Bone sarcoma

REACTIONS (1)
  - Cyanosis [Recovering/Resolving]

NARRATIVE: CASE EVENT DATE: 20191223
